FAERS Safety Report 8835299 (Version 3)
Quarter: 2013Q2

REPORT INFORMATION
  Report Type: Spontaneous
  Country: FR (occurrence: FR)
  Receive Date: 20121011
  Receipt Date: 20130513
  Transmission Date: 20140414
  Serious: Yes (Hospitalization)
  Sender: FDA-Public Use
  Company Number: FR-ASTRAZENECA-2012SE76682

PATIENT
  Age: 0 Day
  Sex: Female
  Weight: 1.6 kg

DRUGS (26)
  1. INEXIUM [Suspect]
     Route: 064
     Dates: end: 20120325
  2. PERFALGAN [Suspect]
     Route: 064
     Dates: start: 20120324, end: 20120325
  3. TAZOCILLINE [Suspect]
     Route: 064
     Dates: start: 20120316, end: 20120320
  4. PROPOFOL [Suspect]
     Route: 064
     Dates: start: 20120310, end: 20120316
  5. OCLINOMEL [Suspect]
     Route: 064
     Dates: start: 20120326
  6. KABIVEN [Suspect]
     Route: 064
     Dates: start: 20120304, end: 20120316
  7. AMOXICILLINE [Suspect]
     Route: 064
     Dates: start: 20120304, end: 20120316
  8. TRACTOCILE [Suspect]
     Route: 064
     Dates: start: 20120324, end: 20120326
  9. ATRACURIUM [Suspect]
     Route: 064
     Dates: start: 20120304, end: 201203
  10. CELESTENE [Suspect]
     Route: 064
     Dates: start: 20120316, end: 20120317
  11. CELESTENE [Suspect]
     Route: 064
     Dates: start: 20120424, end: 20120425
  12. CEFTRIAXONE BASE [Suspect]
     Route: 064
     Dates: start: 20120304, end: 20120311
  13. LOVENOX [Suspect]
     Route: 064
     Dates: start: 20120326, end: 20120326
  14. FUMAFER [Suspect]
     Route: 064
     Dates: start: 20120304, end: 20120316
  15. KETAMINE [Suspect]
     Route: 064
     Dates: start: 20120317, end: 20120320
  16. MIDAZOLAM [Suspect]
     Route: 064
     Dates: start: 20120317, end: 20120317
  17. MIDAZOLAM [Suspect]
     Route: 064
     Dates: start: 20120304, end: 20120323
  18. ZOPHREN [Suspect]
     Route: 064
     Dates: end: 20120324
  19. TAMIFLU [Suspect]
     Route: 064
     Dates: start: 20120310, end: 20120316
  20. RULID [Suspect]
     Route: 064
     Dates: start: 20120310, end: 20120316
  21. SUFENTANIL [Suspect]
     Route: 064
     Dates: start: 20120304
  22. SUFENTANIL [Suspect]
     Route: 064
     Dates: start: 20120318, end: 20120318
  23. SUFENTANIL [Suspect]
     Route: 064
     Dates: start: 20120317, end: 20120317
  24. SUFENTANIL [Suspect]
     Route: 064
     Dates: end: 20120323
  25. EMLA [Suspect]
     Route: 064
     Dates: start: 20120426
  26. TAGAMET [Concomitant]
     Route: 064
     Dates: start: 20120426

REACTIONS (6)
  - Premature baby [Unknown]
  - Cerebral haemorrhage [Recovered/Resolved]
  - Foetal growth restriction [Recovering/Resolving]
  - Feeding disorder neonatal [Unknown]
  - Device related sepsis [Unknown]
  - Apnoea neonatal [Unknown]
